FAERS Safety Report 10916238 (Version 1)
Quarter: 2015Q1

REPORT INFORMATION
  Report Type: Spontaneous
  Country: CA (occurrence: CA)
  Receive Date: 20150316
  Receipt Date: 20150316
  Transmission Date: 20150721
  Serious: Yes (Death, Other)
  Sender: FDA-Public Use
  Company Number: CA-BAXTER-2015BAX007317

PATIENT
  Age: 67 Year
  Sex: Male

DRUGS (1)
  1. DIANEAL W/ DEXTROSE 2.5% [Suspect]
     Active Substance: CALCIUM CHLORIDE\DEXTROSE\MAGNESIUM CHLORIDE\SODIUM CHLORIDE\SODIUM LACTATE
     Indication: PERITONEAL DIALYSIS
     Route: 033
     Dates: start: 20141218, end: 20150203

REACTIONS (5)
  - Gastric haemorrhage [Unknown]
  - Hypotension [Unknown]
  - Dyspnoea [Unknown]
  - Death [Fatal]
  - Heart rate abnormal [Unknown]

NARRATIVE: CASE EVENT DATE: 20150203
